FAERS Safety Report 21715044 (Version 1)
Quarter: 2022Q4

REPORT INFORMATION
  Report Type: Spontaneous
  Country: US (occurrence: None)
  Receive Date: 20221209
  Receipt Date: 20221209
  Transmission Date: 20230113
  Serious: Yes (Hospitalization)
  Sender: FDA-Public Use
  Company Number: None

PATIENT
  Age: 51 Year
  Sex: Female

DRUGS (1)
  1. GAMMAGARD LIQUID [Suspect]
     Active Substance: HUMAN IMMUNOGLOBULIN G
     Indication: Immunodeficiency common variable
     Dosage: FREQUENCY : WEEKLY;?
     Route: 058
     Dates: start: 202207

REACTIONS (8)
  - Infusion related reaction [None]
  - Dizziness [None]
  - Hypertension [None]
  - Influenza like illness [None]
  - Generalised oedema [None]
  - Oedema peripheral [None]
  - Asthma [None]
  - Hypersensitivity [None]

NARRATIVE: CASE EVENT DATE: 20221203
